FAERS Safety Report 18363119 (Version 2)
Quarter: 2020Q4

REPORT INFORMATION
  Report Type: Report from Study
  Country: CO (occurrence: CO)
  Receive Date: 20201008
  Receipt Date: 20201020
  Transmission Date: 20210114
  Serious: Yes (Hospitalization)
  Sender: FDA-Public Use
  Company Number: CO-INCYTE CORPORATION-2020IN009536

PATIENT

DRUGS (8)
  1. PREDNISOLONE. [Concomitant]
     Active Substance: PREDNISOLONE
     Indication: SYSTEMIC LUPUS ERYTHEMATOSUS
     Dosage: 10 MG, Q24H
     Route: 048
  2. JAKAVI [Suspect]
     Active Substance: RUXOLITINIB
     Indication: SYSTEMIC LUPUS ERYTHEMATOSUS
  3. CLONIDINE. [Concomitant]
     Active Substance: CLONIDINE
     Indication: HYPERTENSION
     Dosage: 150 MG, Q6H
     Route: 048
     Dates: start: 202001
  4. MINOXIDIL. [Concomitant]
     Active Substance: MINOXIDIL
     Indication: HYPERTENSION
     Dosage: 10 MG, Q12H
     Route: 048
     Dates: start: 202001
  5. JAKAVI [Suspect]
     Active Substance: RUXOLITINIB
     Indication: MYELOFIBROSIS
     Dosage: 30 MG, QD
     Route: 048
     Dates: start: 202001, end: 202004
  6. CARVEDILOL. [Suspect]
     Active Substance: CARVEDILOL
     Indication: HYPERTENSION
     Dosage: 25 MG, Q12H
     Route: 065
     Dates: start: 202001
  7. CALCIUM [Concomitant]
     Active Substance: CALCIUM
     Indication: SYSTEMIC LUPUS ERYTHEMATOSUS
     Dosage: 500 MG, QD
     Route: 048
  8. NISOLDIPINE. [Concomitant]
     Active Substance: NISOLDIPINE
     Indication: HYPERTENSION
     Dosage: UNK UNK, Q6H
     Route: 048
     Dates: start: 202001

REACTIONS (6)
  - Product use in unapproved indication [Unknown]
  - Depressive symptom [Recovered/Resolved]
  - Inappropriate schedule of product administration [Unknown]
  - Autoimmune disorder [Recovered/Resolved]
  - Immunodeficiency [Unknown]
  - Seizure [Recovered/Resolved]

NARRATIVE: CASE EVENT DATE: 202005
